FAERS Safety Report 16153674 (Version 4)
Quarter: 2019Q3

REPORT INFORMATION
  Report Type: Report from Study
  Country: AR (occurrence: AR)
  Receive Date: 20190403
  Receipt Date: 20190703
  Transmission Date: 20191004
  Serious: Yes (Death, Hospitalization, Other)
  Sender: FDA-Public Use
  Company Number: AR-BAYER-2019-061432

PATIENT
  Age: 66 Year
  Sex: Male

DRUGS (4)
  1. ACTRON [PARACETAMOL] [Concomitant]
     Dosage: UNK
  2. NEXAVAR [Suspect]
     Active Substance: SORAFENIB
     Indication: HEPATOCELLULAR CARCINOMA
     Dosage: DAILY DOSE 800 MG
     Route: 048
     Dates: start: 20190301, end: 2019
  3. CORBIS [Concomitant]
     Dosage: UNK
  4. PREGABALIN. [Concomitant]
     Active Substance: PREGABALIN
     Dosage: UNK

REACTIONS (5)
  - Cholelithiasis [Fatal]
  - Decreased appetite [Not Recovered/Not Resolved]
  - Hepatocellular carcinoma [None]
  - Muscular weakness [Not Recovered/Not Resolved]
  - Abnormal loss of weight [Not Recovered/Not Resolved]

NARRATIVE: CASE EVENT DATE: 2019
